FAERS Safety Report 11595404 (Version 1)
Quarter: 2015Q4

REPORT INFORMATION
  Report Type: Report from Study
  Country: US (occurrence: US)
  Receive Date: 20151006
  Receipt Date: 20151006
  Transmission Date: 20160304
  Serious: Yes (Hospitalization, Other)
  Sender: FDA-Public Use
  Company Number: US-AMGEN-USASL2015102766

PATIENT
  Age: 94 Year
  Sex: Male
  Weight: 69.39 kg

DRUGS (3)
  1. HYDROCHLOROTHIAZIDE. [Concomitant]
     Active Substance: HYDROCHLOROTHIAZIDE
     Dosage: 12.5 MG TAKE 1 TABLET, DAILY
     Route: 048
  2. PROCRIT [Suspect]
     Active Substance: ERYTHROPOIETIN
     Indication: CHRONIC KIDNEY DISEASE
     Dosage: 20000 UNIT/ML INJECT 1 ML, WEEKLY
     Route: 065
  3. AMLODIPINE BESYLATE. [Concomitant]
     Active Substance: AMLODIPINE BESYLATE
     Indication: ESSENTIAL HYPERTENSION
     Dosage: 5 MG TAKE 1 TABLET, DAILY
     Route: 048

REACTIONS (15)
  - Hypertensive nephropathy [Unknown]
  - Red blood cell count decreased [Unknown]
  - Pancreatic duct stenosis [Unknown]
  - Arteriovenous fistula operation [Unknown]
  - Stent removal [Unknown]
  - Bile duct stone [Unknown]
  - Blood creatinine increased [Unknown]
  - Mean cell haemoglobin concentration decreased [Unknown]
  - Pancreatolithiasis [Unknown]
  - Abdominal pain [Unknown]
  - Haematocrit decreased [Unknown]
  - Cholelithiasis [Unknown]
  - Platelet count decreased [Unknown]
  - Haemoglobin decreased [Unknown]
  - Red blood cell abnormality [Unknown]

NARRATIVE: CASE EVENT DATE: 2012
